FAERS Safety Report 10997424 (Version 1)
Quarter: 2015Q2

REPORT INFORMATION
  Report Type: Spontaneous
  Country: US (occurrence: US)
  Receive Date: 20150408
  Receipt Date: 20150408
  Transmission Date: 20150821
  Serious: Yes (Other)
  Sender: FDA-Public Use
  Company Number: US-NOVOPROD-444340

PATIENT
  Sex: Male

DRUGS (2)
  1. VICTOZA [Suspect]
     Active Substance: LIRAGLUTIDE
     Indication: TYPE 2 DIABETES MELLITUS
     Dosage: UNKNOWN
     Route: 058
  2. ACTOS [Suspect]
     Active Substance: PIOGLITAZONE HYDROCHLORIDE
     Indication: TYPE 2 DIABETES MELLITUS
     Dosage: UNKNOWN
     Route: 048

REACTIONS (9)
  - Pneumonia [Unknown]
  - White blood cell count decreased [Unknown]
  - Adverse event [Unknown]
  - Pancreatic disorder [Unknown]
  - Pneumothorax [Unknown]
  - Sepsis [Unknown]
  - Renal failure [Unknown]
  - Pancreatic cyst [Unknown]
  - Pancreatitis [Unknown]
